FAERS Safety Report 6512049-3 (Version None)
Quarter: 2009Q4

REPORT INFORMATION
  Report Type: 
  Country: None (occurrence: None)
  Receive Date: 20091222
  Receipt Date: 20090520
  Transmission Date: 20100525
  Serious: No
  Sender: FDA-Public Use
  Company Number: US-ASTRAZENECA-2009UW13141

PATIENT
  Age: 88 Year
  Sex: Female
  Weight: 69.9 kg

DRUGS (5)
  1. CRESTOR [Suspect]
     Indication: BLOOD CHOLESTEROL INCREASED
     Route: 048
     Dates: start: 20080901
  2. PROPRANOLOL [Concomitant]
  3. CALTRATE WITH D [Concomitant]
  4. GLUCOSAMINE CHONDROITIN [Concomitant]
  5. ASPIRIN [Concomitant]

REACTIONS (1)
  - THERAPEUTIC RESPONSE UNEXPECTED [None]
